FAERS Safety Report 18571820 (Version 2)
Quarter: 2021Q3

REPORT INFORMATION
  Report Type: Report from Study
  Country: US (occurrence: US)
  Receive Date: 20201202
  Receipt Date: 20210906
  Transmission Date: 20211014
  Serious: Yes (Other)
  Sender: FDA-Public Use
  Company Number: US-JNJFOC-A-US2019-197436

PATIENT
  Age: 65 Year
  Sex: Female
  Weight: 105.78 kg

DRUGS (7)
  1. UPTRAVI [Suspect]
     Active Substance: SELEXIPAG
     Indication: PULMONARY ARTERIAL HYPERTENSION
     Dosage: 800 MCG, BID
     Route: 048
  2. UPTRAVI [Suspect]
     Active Substance: SELEXIPAG
     Dosage: 1400 MCG, BID
     Route: 048
  3. UPTRAVI [Suspect]
     Active Substance: SELEXIPAG
     Route: 048
  4. UPTRAVI [Suspect]
     Active Substance: SELEXIPAG
     Dosage: 1200 MCG, BID
     Route: 048
  5. AMLODIPINE [Concomitant]
     Active Substance: AMLODIPINE BESYLATE
  6. UPTRAVI [Suspect]
     Active Substance: SELEXIPAG
     Dosage: UNK
     Route: 048
     Dates: start: 20190920
  7. TADALAFIL. [Concomitant]
     Active Substance: TADALAFIL

REACTIONS (25)
  - Headache [Not Recovered/Not Resolved]
  - Systemic lupus erythematosus [Not Recovered/Not Resolved]
  - Constipation [Unknown]
  - Pain in extremity [Recovered/Resolved]
  - Gastric disorder [Unknown]
  - Weight decreased [Unknown]
  - Migraine [Recovered/Resolved]
  - Ear pain [Recovered/Resolved]
  - Hypoaesthesia [Recovered/Resolved]
  - Irritable bowel syndrome [Unknown]
  - Pyrexia [Unknown]
  - Anaemia [Unknown]
  - Vision blurred [Recovered/Resolved]
  - Joint swelling [Recovered/Resolved]
  - Microcytic anaemia [Unknown]
  - Gastrointestinal disorder [Unknown]
  - Arthralgia [Not Recovered/Not Resolved]
  - Pain in jaw [Not Recovered/Not Resolved]
  - Suspected COVID-19 [Unknown]
  - Hypotension [Unknown]
  - Weight fluctuation [Unknown]
  - Haemorrhage urinary tract [Unknown]
  - Chills [Unknown]
  - Eye pain [Recovered/Resolved]
  - Fluid retention [Unknown]

NARRATIVE: CASE EVENT DATE: 20200204
